APPROVED DRUG PRODUCT: NAYZILAM
Active Ingredient: MIDAZOLAM
Strength: 5MG/SPRAY
Dosage Form/Route: SPRAY;NASAL
Application: N211321 | Product #001
Applicant: UCB INC
Approved: May 17, 2019 | RLD: Yes | RS: Yes | Type: RX

PATENTS:
Patent 9687495 | Expires: Jan 18, 2028
Patent 9289432 | Expires: Jan 18, 2028
Patent 8217033 | Expires: Jan 18, 2028
Patent 8809322 | Expires: Jan 18, 2028

EXCLUSIVITY:
Code: ODE-243 | Date: May 17, 2026